FAERS Safety Report 16929713 (Version 1)
Quarter: 2019Q4

REPORT INFORMATION
  Report Type: Spontaneous
  Country: CN (occurrence: CN)
  Receive Date: 20191017
  Receipt Date: 20191017
  Transmission Date: 20200122
  Serious: Yes (Other)
  Sender: FDA-Public Use
  Company Number: CN-PFIZER INC-2019443716

PATIENT
  Age: 7 Year
  Sex: Female
  Weight: 26 kg

DRUGS (1)
  1. SOLU-MEDROL [Suspect]
     Active Substance: METHYLPREDNISOLONE SODIUM SUCCINATE
     Indication: HENOCH-SCHONLEIN PURPURA
     Dosage: 500 MG, 1X/DAY
     Route: 041
     Dates: start: 20190928, end: 20190930

REACTIONS (2)
  - Lupus nephritis [Unknown]
  - Intraocular pressure increased [Unknown]

NARRATIVE: CASE EVENT DATE: 2019
